FAERS Safety Report 5381606-2 (Version None)
Quarter: 2007Q3

REPORT INFORMATION
  Report Type: 
  Country: None (occurrence: None)
  Receive Date: 20070709
  Receipt Date: 20070702
  Transmission Date: 20080115
  Serious: Yes (Life-Threatening)
  Sender: FDA-Public Use
  Company Number: JP-AVENTIS-200711646JP

PATIENT
  Age: 58 Year
  Sex: Female
  Weight: 34.6 kg

DRUGS (10)
  1. LASIX [Suspect]
     Indication: OEDEMA
     Route: 048
     Dates: start: 20060101
  2. LASIX [Suspect]
     Route: 048
     Dates: start: 20070401
  3. LASIX [Suspect]
     Route: 048
     Dates: start: 20070630
  4. ASPARA K                           /00466902/ [Concomitant]
     Indication: HYPOKALAEMIA
     Dosage: DOSE: 3 TABLETS
     Route: 048
     Dates: start: 20060901, end: 20070501
  5. DOGMATYL [Concomitant]
     Indication: NEUROSIS
     Route: 048
     Dates: start: 20060901, end: 20070501
  6. ALDACTONE [Concomitant]
     Indication: HYPOKALAEMIA
     Route: 048
     Dates: start: 20060901, end: 20070501
  7. LOXONIN                            /00890701/ [Concomitant]
     Route: 048
     Dates: start: 20060901, end: 20070501
  8. GASTER D [Concomitant]
     Indication: GASTRITIS
     Route: 048
     Dates: start: 20060901, end: 20070501
  9. HOCHUUEKKITOU [Concomitant]
     Indication: ANOREXIA
     Route: 048
     Dates: start: 20060901, end: 20070501
  10. HALCION [Concomitant]
     Indication: NEUROSIS
     Route: 048
     Dates: start: 20060901, end: 20070501

REACTIONS (1)
  - HYPOKALAEMIA [None]
